FAERS Safety Report 25466778 (Version 1)
Quarter: 2025Q2

REPORT INFORMATION
  Report Type: Spontaneous
  Country: US (occurrence: US)
  Receive Date: 20250623
  Receipt Date: 20250623
  Transmission Date: 20250717
  Serious: Yes (Other)
  Sender: UCB
  Company Number: US-UCBSA-2025019468

PATIENT
  Age: 62 Year
  Sex: Female
  Weight: 68 kg

DRUGS (1)
  1. ZILBRYSQ [Suspect]
     Active Substance: ZILUCOPLAN
     Indication: Myasthenia gravis
     Dosage: 23 MILLIGRAM, ONCE DAILY (QD)
     Route: 058
     Dates: start: 202302

REACTIONS (3)
  - Appendicitis [Recovered/Resolved]
  - Appendicectomy [Not Recovered/Not Resolved]
  - Hyperaesthesia [Recovering/Resolving]

NARRATIVE: CASE EVENT DATE: 20250330
